FAERS Safety Report 5882509-7 (Version None)
Quarter: 2008Q3

REPORT INFORMATION
  Report Type: 
  Country: None (occurrence: None)
  Receive Date: 20080913
  Receipt Date: 20080805
  Transmission Date: 20090109
  Serious: No
  Sender: FDA-Public Use
  Company Number: US-ABBOTT-08P-163-0469032-00

PATIENT
  Sex: Female
  Weight: 88.53 kg

DRUGS (2)
  1. HUMIRA [Suspect]
     Indication: CROHN'S DISEASE
     Route: 058
     Dates: start: 20070401
  2. OLMESARTAN MEDOXOMIL [Concomitant]
     Indication: HYPERTENSION
     Dosage: 0.5 PILL
     Route: 048
     Dates: start: 20080731

REACTIONS (7)
  - ANOREXIA [None]
  - ASTHENIA [None]
  - BLOOD TRIGLYCERIDES INCREASED [None]
  - DIARRHOEA [None]
  - DRUG DOSE OMISSION [None]
  - DRUG EFFECT DECREASED [None]
  - PAIN [None]
